FAERS Safety Report 15985890 (Version 2)
Quarter: 2019Q2

REPORT INFORMATION
  Report Type: Spontaneous
  Country: US (occurrence: US)
  Receive Date: 20190220
  Receipt Date: 20190412
  Transmission Date: 20190711
  Serious: Yes (Other)
  Sender: FDA-Public Use
  Company Number: PHHY2019US036761

PATIENT
  Age: 27 Year
  Sex: Male

DRUGS (133)
  1. PENTAM [Suspect]
     Active Substance: PENTAMIDINE ISETHIONATE
     Indication: PRODUCT USED FOR UNKNOWN INDICATION
     Route: 065
  2. CEFEPIME [Suspect]
     Active Substance: CEFEPIME HYDROCHLORIDE
     Dosage: UNK, Q12H
     Route: 065
     Dates: start: 20110224, end: 20110226
  3. CEFEPIME [Suspect]
     Active Substance: CEFEPIME HYDROCHLORIDE
     Dosage: UNK, Q12H
     Route: 065
     Dates: start: 20110308, end: 20110309
  4. IMIPENEM [Suspect]
     Active Substance: IMIPENEM
     Indication: PRODUCT USED FOR UNKNOWN INDICATION
     Dosage: UNK
     Route: 065
  5. GANCICLOVIR. [Suspect]
     Active Substance: GANCICLOVIR
     Dosage: UNK UNK, Q12H
     Route: 042
     Dates: start: 20110211, end: 20110213
  6. GANCICLOVIR. [Suspect]
     Active Substance: GANCICLOVIR
     Dosage: UNK UNK, Q24H
     Route: 042
     Dates: start: 20110218
  7. CICLOSPORIN [Concomitant]
     Active Substance: CYCLOSPORINE
     Dosage: UNK UNK, Q12H
     Route: 048
     Dates: start: 20110225, end: 20110226
  8. ACETAMINOPHEN. [Concomitant]
     Active Substance: ACETAMINOPHEN
     Indication: PRODUCT USED FOR UNKNOWN INDICATION
     Dosage: UNK UNK, QD
     Route: 048
     Dates: start: 20110210
  9. ACETAMINOPHEN. [Concomitant]
     Active Substance: ACETAMINOPHEN
     Dosage: UNK UNK, QD
     Route: 048
     Dates: start: 20110210, end: 20110308
  10. DIPHENHYDRAMINE HCL [Concomitant]
     Active Substance: DIPHENHYDRAMINE HYDROCHLORIDE
     Dosage: UNK UNK, QD
     Route: 042
     Dates: start: 20110210
  11. HEPARIN SODIUM. [Concomitant]
     Active Substance: HEPARIN SODIUM
     Indication: PRODUCT USED FOR UNKNOWN INDICATION
     Dosage: UNK UNK, QD
     Route: 065
  12. FLEBOGAMMA [Concomitant]
     Active Substance: HUMAN IMMUNOGLOBULIN G
     Dosage: UNK UNK, QD
     Route: 042
     Dates: start: 20110301
  13. MAGNESIUM [Concomitant]
     Active Substance: MAGNESIUM
     Indication: PRODUCT USED FOR UNKNOWN INDICATION
     Dosage: UNK
     Dates: start: 20110224, end: 20110226
  14. POTASSIUM ACETATE. [Concomitant]
     Active Substance: POTASSIUM ACETATE
     Indication: PRODUCT USED FOR UNKNOWN INDICATION
     Dosage: UNK
     Route: 042
     Dates: start: 20110304
  15. POTASSIUM CHLORIDE. [Concomitant]
     Active Substance: POTASSIUM CHLORIDE
     Dosage: UNK UNK, Q14H
     Route: 042
     Dates: start: 20110217, end: 20110222
  16. PIPERACILLIN AND TAZOBACTAM [Suspect]
     Active Substance: PIPERACILLIN SODIUM\TAZOBACTAM SODIUM
     Indication: PRODUCT USED FOR UNKNOWN INDICATION
     Dosage: UNK
     Route: 065
  17. LINEZOLID. [Suspect]
     Active Substance: LINEZOLID
     Indication: PRODUCT USED FOR UNKNOWN INDICATION
     Dosage: UNK
     Route: 065
  18. SULFAMETOXAZOL + TRIMETOPRIMA [Suspect]
     Active Substance: SULFAMETHOXAZOLE\TRIMETHOPRIM
     Indication: PRODUCT USED FOR UNKNOWN INDICATION
     Dosage: UNK
     Route: 065
  19. VITAMIIN C [Concomitant]
     Active Substance: ASCORBIC ACID
     Dosage: UNK UNK, Q24H
     Route: 048
     Dates: start: 20110305, end: 20110408
  20. DIPHENHYDRAMINE HCL [Concomitant]
     Active Substance: DIPHENHYDRAMINE HYDROCHLORIDE
     Indication: PRODUCT USED FOR UNKNOWN INDICATION
     Dosage: UNK UNK, Q4H
     Route: 042
     Dates: start: 20110210, end: 20110308
  21. FENTANYL CITRATE. [Concomitant]
     Active Substance: FENTANYL CITRATE
     Dosage: UNK UNK, QD
     Route: 042
     Dates: start: 20110218
  22. FLEBOGAMMA [Concomitant]
     Active Substance: HUMAN IMMUNOGLOBULIN G
     Indication: PRODUCT USED FOR UNKNOWN INDICATION
     Dosage: UNK UNK, QD
     Route: 042
     Dates: start: 20110210
  23. LORAZEPAM. [Concomitant]
     Active Substance: LORAZEPAM
     Indication: PRODUCT USED FOR UNKNOWN INDICATION
     Dosage: UNK
     Route: 048
     Dates: start: 20101223, end: 20110212
  24. MAGNESIUM [Concomitant]
     Active Substance: MAGNESIUM
     Dosage: UNK
     Dates: start: 20110223, end: 20110224
  25. OLANZAPINE. [Concomitant]
     Active Substance: OLANZAPINE
     Indication: PRODUCT USED FOR UNKNOWN INDICATION
     Dosage: UNK UNK, QHS
     Route: 065
     Dates: start: 20110223, end: 20110309
  26. PANTOPRAZOLE SODIUM. [Concomitant]
     Active Substance: PANTOPRAZOLE SODIUM
     Indication: PRODUCT USED FOR UNKNOWN INDICATION
     Dosage: UNK
     Route: 042
     Dates: start: 20110210, end: 20110310
  27. POLYETHYLENE GLYCOL [Concomitant]
     Active Substance: POLYETHYLENE GLYCOLS
     Indication: PRODUCT USED FOR UNKNOWN INDICATION
     Dosage: UNK UNK, QD
     Route: 048
     Dates: start: 20110302
  28. GANCICLOVIR. [Suspect]
     Active Substance: GANCICLOVIR
     Dosage: UNK UNK, Q24H
     Route: 042
     Dates: start: 20110224, end: 20110225
  29. CICLOSPORIN [Concomitant]
     Active Substance: CYCLOSPORINE
     Indication: PRODUCT USED FOR UNKNOWN INDICATION
     Dosage: UNK UNK, Q12H
     Route: 048
     Dates: start: 20110226, end: 20110227
  30. NYSTATIN. [Concomitant]
     Active Substance: NYSTATIN
     Dosage: UNK UNK, Q6H
     Route: 061
     Dates: start: 20110210, end: 20110311
  31. CALCIUM GLUCONATE. [Concomitant]
     Active Substance: CALCIUM GLUCONATE
     Dosage: UNK
     Route: 065
     Dates: start: 20110217, end: 20110219
  32. CEFOTETAN DISODIUM [Concomitant]
     Active Substance: CEFOTETAN DISODIUM
     Indication: PRODUCT USED FOR UNKNOWN INDICATION
     Dosage: UNK UNK, QD
     Dates: start: 20110303
  33. DRONABINOL. [Concomitant]
     Active Substance: DRONABINOL
     Dosage: UNK UNK, BID
     Route: 048
     Dates: start: 20110303, end: 20110303
  34. GAMUNEX [Concomitant]
     Active Substance: HUMAN IMMUNOGLOBULIN G
     Dosage: UNK UNK, QD
     Route: 042
     Dates: start: 20110214, end: 20110222
  35. MAGNESIUM [Concomitant]
     Active Substance: MAGNESIUM
     Dosage: UNK
     Dates: start: 20110226, end: 20110303
  36. MAGNESIUM [Concomitant]
     Active Substance: MAGNESIUM
     Dosage: UNK
     Dates: start: 20110216, end: 20110218
  37. MAGNESIUM [Concomitant]
     Active Substance: MAGNESIUM
     Dosage: UNK
     Dates: start: 20110306, end: 20110308
  38. MAGNESIUM [Concomitant]
     Active Substance: MAGNESIUM
     Dosage: UNK
     Dates: start: 20110303, end: 20110304
  39. ONDANSETRON [Concomitant]
     Active Substance: ONDANSETRON
     Dosage: UNK UNK, Q12H
     Route: 042
     Dates: start: 20110301, end: 20110409
  40. PENTAMIDINE ISETHIONATE. [Concomitant]
     Active Substance: PENTAMIDINE ISETHIONATE
     Indication: PRODUCT USED FOR UNKNOWN INDICATION
     Dosage: UNK UNK, QD
     Route: 065
     Dates: start: 20110216
  41. POTASSIUM ACETATE. [Concomitant]
     Active Substance: POTASSIUM ACETATE
     Dosage: UNK
     Route: 042
     Dates: start: 20110304, end: 20110308
  42. POTASSIUM CHLORIDE. [Concomitant]
     Active Substance: POTASSIUM CHLORIDE
     Dosage: UNK UNK, Q14H
     Route: 042
     Dates: start: 20110308
  43. SODIUM ACETATE. [Concomitant]
     Active Substance: SODIUM ACETATE
     Dosage: UNK
     Route: 042
     Dates: start: 20110223
  44. SODIUM ACETATE. [Concomitant]
     Active Substance: SODIUM ACETATE
     Dosage: UNK
     Route: 042
     Dates: start: 20110211
  45. SODIUM ACETATE. [Concomitant]
     Active Substance: SODIUM ACETATE
     Dosage: UNK
     Route: 042
     Dates: start: 20110211, end: 20110308
  46. VANCOMYCIN HYDROCHLORIDE. [Concomitant]
     Active Substance: VANCOMYCIN HYDROCHLORIDE
     Dosage: UNK UNK, QD
     Route: 042
     Dates: start: 20110308
  47. DEXTROSE. [Concomitant]
     Active Substance: DEXTROSE
     Dosage: UNK UNK, Q12H
     Route: 065
     Dates: start: 20110210, end: 20110216
  48. DEXTROSE. [Concomitant]
     Active Substance: DEXTROSE
     Dosage: UNK UNK, Q24H
     Route: 065
     Dates: start: 20110303
  49. VANCOMYCIN [Suspect]
     Active Substance: VANCOMYCIN
     Indication: PRODUCT USED FOR UNKNOWN INDICATION
     Dosage: UNK
     Route: 065
  50. LEVOFLOXACIN. [Suspect]
     Active Substance: LEVOFLOXACIN
     Indication: PRODUCT USED FOR UNKNOWN INDICATION
     Dosage: UNK
     Route: 065
  51. GANCICLOVIR. [Suspect]
     Active Substance: GANCICLOVIR
     Dosage: UNK UNK, Q24H
     Route: 042
     Dates: start: 20110213, end: 20110214
  52. CICLOSPORIN [Concomitant]
     Active Substance: CYCLOSPORINE
     Dosage: UNK UNK, Q12H
     Route: 048
     Dates: start: 20110211, end: 20110212
  53. ACETYL [Concomitant]
     Dosage: UNK UNK, Q12H
     Route: 048
     Dates: start: 20110221, end: 20110222
  54. ALBUTEROL SULFATE. [Concomitant]
     Active Substance: ALBUTEROL SULFATE
     Dosage: UNK UNK, QD
     Route: 065
     Dates: start: 20110216
  55. CALCIUM GLUCONATE. [Concomitant]
     Active Substance: CALCIUM GLUCONATE
     Dosage: UNK
     Route: 065
     Dates: start: 20110210, end: 20110214
  56. ERYTHROMYCIN ETHYLSUCCINATE. [Concomitant]
     Active Substance: ERYTHROMYCIN ETHYLSUCCINATE
     Dosage: UNK UNK, Q4H
     Route: 048
     Dates: start: 20110302
  57. FENTANYL CITRATE. [Concomitant]
     Active Substance: FENTANYL CITRATE
     Indication: PRODUCT USED FOR UNKNOWN INDICATION
     Dosage: UNK
     Route: 042
     Dates: start: 20110303
  58. FLEBOGAMMA [Concomitant]
     Active Substance: HUMAN IMMUNOGLOBULIN G
     Dosage: UNK UNK, QD
     Route: 042
     Dates: start: 20110308
  59. MAGNESIUM [Concomitant]
     Active Substance: MAGNESIUM
     Dosage: UNK
     Dates: start: 20110217, end: 20110223
  60. MAGNESIUM [Concomitant]
     Active Substance: MAGNESIUM
     Dosage: UNK
     Dates: start: 20110225, end: 20110308
  61. MAGNESIUM [Concomitant]
     Active Substance: MAGNESIUM
     Dosage: UNK
     Dates: start: 20110303, end: 20110304
  62. MORPHINE SULPHATE [Concomitant]
     Active Substance: MORPHINE SULFATE
     Dosage: UNK
     Route: 048
     Dates: start: 20110303, end: 20110305
  63. OLANZAPINE. [Concomitant]
     Active Substance: OLANZAPINE
     Dosage: UNK UNK, QHS
     Route: 065
     Dates: start: 20110210, end: 20110223
  64. ONDANSETRON [Concomitant]
     Active Substance: ONDANSETRON
     Dosage: UNK UNK, Q12H
     Route: 042
     Dates: start: 20110303
  65. PHENAZOPYRIDINE. [Concomitant]
     Active Substance: PHENAZOPYRIDINE
     Indication: PRODUCT USED FOR UNKNOWN INDICATION
     Dosage: UNK UNK, Q8H
     Route: 048
     Dates: start: 20110210, end: 20110212
  66. POTASSIUM CHLORIDE. [Concomitant]
     Active Substance: POTASSIUM CHLORIDE
     Dosage: UNK UNK, Q14H
     Route: 042
     Dates: start: 20110214, end: 20110217
  67. ZINC OXIDE. [Concomitant]
     Active Substance: ZINC OXIDE
     Indication: PRODUCT USED FOR UNKNOWN INDICATION
     Dosage: UNK UNK, Q6H
     Route: 061
     Dates: start: 20110222, end: 20110324
  68. DEXTROSE. [Concomitant]
     Active Substance: DEXTROSE
     Dosage: UNK UNK, Q12H
     Route: 065
     Dates: start: 20110211, end: 20110213
  69. CICLOSPORIN [Concomitant]
     Active Substance: CYCLOSPORINE
     Dosage: UNK UNK, Q12H
     Route: 048
     Dates: start: 20110214, end: 20110224
  70. NYSTATIN. [Concomitant]
     Active Substance: NYSTATIN
     Dosage: UNK UNK, Q6H
     Route: 048
     Dates: start: 20110210, end: 20110311
  71. BECLOMETHASONE [Concomitant]
     Active Substance: BECLOMETHASONE
     Indication: PRODUCT USED FOR UNKNOWN INDICATION
     Dosage: UNK UNK, BID
     Route: 065
     Dates: start: 20110304
  72. CALCIUM GLUCONATE. [Concomitant]
     Active Substance: CALCIUM GLUCONATE
     Indication: PRODUCT USED FOR UNKNOWN INDICATION
     Dosage: UNK
     Route: 065
     Dates: start: 20110224
  73. CALCIUM GLUCONATE. [Concomitant]
     Active Substance: CALCIUM GLUCONATE
     Dosage: UNK
     Route: 065
     Dates: start: 20110214, end: 20110218
  74. ERYTHROMYCIN ETHYLSUCCINATE. [Concomitant]
     Active Substance: ERYTHROMYCIN ETHYLSUCCINATE
     Indication: PRODUCT USED FOR UNKNOWN INDICATION
     Dosage: UNK UNK, QD
     Route: 048
     Dates: start: 20110302
  75. FENTANYL. [Concomitant]
     Active Substance: FENTANYL
     Indication: PRODUCT USED FOR UNKNOWN INDICATION
     Dosage: UNK
     Route: 062
     Dates: start: 20110113, end: 20110212
  76. FLEBOGAMMA [Concomitant]
     Active Substance: HUMAN IMMUNOGLOBULIN G
     Dosage: UNK UNK, Q48H
     Route: 042
     Dates: start: 20110212, end: 20110214
  77. GAMUNEX [Concomitant]
     Active Substance: HUMAN IMMUNOGLOBULIN G
     Indication: PRODUCT USED FOR UNKNOWN INDICATION
     Dosage: UNK UNK, QD
     Route: 042
     Dates: start: 20110222
  78. MAGNESIUM [Concomitant]
     Active Substance: MAGNESIUM
     Dosage: UNK
     Dates: start: 20110308
  79. MAGNESIUM [Concomitant]
     Active Substance: MAGNESIUM
     Dosage: UNK
     Dates: start: 20110304, end: 20110306
  80. POTASSIUM CHLORIDE. [Concomitant]
     Active Substance: POTASSIUM CHLORIDE
     Indication: PRODUCT USED FOR UNKNOWN INDICATION
     Dosage: UNK
     Route: 042
     Dates: start: 20110210, end: 20110214
  81. SODIUM ACETATE. [Concomitant]
     Active Substance: SODIUM ACETATE
     Indication: PRODUCT USED FOR UNKNOWN INDICATION
     Dosage: UNK
     Route: 065
     Dates: start: 20110303
  82. SODIUM ACETATE. [Concomitant]
     Active Substance: SODIUM ACETATE
     Dosage: UNK
     Route: 042
     Dates: start: 20110214
  83. SODIUM ACETATE. [Concomitant]
     Active Substance: SODIUM ACETATE
     Dosage: UNK
     Route: 042
     Dates: start: 20110211, end: 20110518
  84. URSODIOL. [Concomitant]
     Active Substance: URSODIOL
     Indication: PRODUCT USED FOR UNKNOWN INDICATION
     Dosage: UNK UNK, Q12H
     Route: 048
     Dates: start: 20110218, end: 20110408
  85. DEXTROSE. [Concomitant]
     Active Substance: DEXTROSE
     Dosage: UNK UNK, QD
     Route: 065
     Dates: start: 20110302
  86. DEXTROSE. [Concomitant]
     Active Substance: DEXTROSE
     Dosage: UNK UNK, Q24H
     Route: 065
     Dates: start: 20110301, end: 20110409
  87. MICAFUNGIN. [Suspect]
     Active Substance: MICAFUNGIN SODIUM
     Indication: PRODUCT USED FOR UNKNOWN INDICATION
     Dosage: UNK
     Route: 065
     Dates: start: 20110211, end: 20110518
  88. CICLOSPORIN [Concomitant]
     Active Substance: CYCLOSPORINE
     Dosage: UNK UNK, Q12H
     Route: 048
     Dates: start: 20110210, end: 20110214
  89. HYDROCORTISONE. [Concomitant]
     Active Substance: HYDROCORTISONE
     Indication: PRODUCT USED FOR UNKNOWN INDICATION
     Dosage: UNK
     Route: 065
  90. AMLODIPINE BESILATE [Concomitant]
     Active Substance: AMLODIPINE BESYLATE
     Indication: PRODUCT USED FOR UNKNOWN INDICATION
     Dosage: UNK UNK, Q24H
     Route: 048
     Dates: start: 20110217, end: 20110308
  91. CALCIUM GLUCONATE. [Concomitant]
     Active Substance: CALCIUM GLUCONATE
     Dosage: UNK
     Route: 065
     Dates: start: 20110223, end: 20110224
  92. FENTANYL CITRATE. [Concomitant]
     Active Substance: FENTANYL CITRATE
     Dosage: UNK UNK, QD
     Route: 042
     Dates: start: 20110303, end: 20110303
  93. MAGNESIUM [Concomitant]
     Active Substance: MAGNESIUM
     Dosage: UNK
     Dates: start: 20110303, end: 20110306
  94. MAGNESIUM [Concomitant]
     Active Substance: MAGNESIUM
     Dosage: UNK
     Dates: start: 20110306, end: 20110307
  95. OXYBUTYNIN. [Concomitant]
     Active Substance: OXYBUTYNIN CHLORIDE
     Indication: PRODUCT USED FOR UNKNOWN INDICATION
     Dosage: UNK UNK, Q8H
     Route: 048
     Dates: start: 20110210, end: 20110214
  96. POTASSIUM CHLORIDE. [Concomitant]
     Active Substance: POTASSIUM CHLORIDE
     Dosage: UNK UNK, Q14H
     Route: 042
     Dates: start: 20110217
  97. SODIUM ACETATE. [Concomitant]
     Active Substance: SODIUM ACETATE
     Dosage: UNK
     Route: 042
     Dates: start: 20110221
  98. SODIUM ACETATE. [Concomitant]
     Active Substance: SODIUM ACETATE
     Dosage: UNK
     Route: 042
     Dates: start: 20110217
  99. CEFEPIME [Suspect]
     Active Substance: CEFEPIME HYDROCHLORIDE
     Indication: PRODUCT USED FOR UNKNOWN INDICATION
     Dosage: UNK, QD
     Route: 065
     Dates: start: 20110308
  100. GANCICLOVIR. [Suspect]
     Active Substance: GANCICLOVIR
     Dosage: UNK UNK, Q24H
     Route: 042
     Dates: start: 20110215, end: 20110222
  101. GANCICLOVIR. [Suspect]
     Active Substance: GANCICLOVIR
     Dosage: UNK UNK, QD
     Route: 042
     Dates: start: 20110218
  102. ACETAMINOPHEN. [Concomitant]
     Active Substance: ACETAMINOPHEN
     Dosage: UNK UNK, QD
     Route: 048
     Dates: start: 20110303
  103. NYSTATIN. [Concomitant]
     Active Substance: NYSTATIN
     Dosage: UNK UNK, Q6H
     Route: 061
     Dates: start: 20110222, end: 20110323
  104. CLOBETASOL [Concomitant]
     Active Substance: CLOBETASOL
     Indication: PRODUCT USED FOR UNKNOWN INDICATION
     Dosage: UNK UNK, QD
     Route: 061
     Dates: start: 20110303, end: 20110308
  105. DRONABINOL. [Concomitant]
     Active Substance: DRONABINOL
     Indication: PRODUCT USED FOR UNKNOWN INDICATION
     Dosage: UNK
     Route: 048
     Dates: start: 20110210, end: 20110303
  106. LEUCOVORIN CALCIUM. [Concomitant]
     Active Substance: LEUCOVORIN CALCIUM
     Indication: PRODUCT USED FOR UNKNOWN INDICATION
     Dosage: UNK UNK, Q24H
     Route: 048
     Dates: start: 20110210, end: 20110408
  107. URSODIOL. [Concomitant]
     Active Substance: URSODIOL
     Dosage: UNK UNK, Q12H
     Route: 048
     Dates: start: 20110218
  108. VANCOMYCIN HYDROCHLORIDE. [Concomitant]
     Active Substance: VANCOMYCIN HYDROCHLORIDE
     Indication: PRODUCT USED FOR UNKNOWN INDICATION
     Dosage: UNK UNK, Q12H
     Route: 042
     Dates: start: 20110308, end: 20110309
  109. DEXTROSE. [Concomitant]
     Active Substance: DEXTROSE
     Indication: PRODUCT USED FOR UNKNOWN INDICATION
     Dosage: UNK UNK, QD
     Route: 065
     Dates: start: 20110210, end: 20110211
  110. DEXTROSE. [Concomitant]
     Active Substance: DEXTROSE
     Dosage: UNK UNK, QD
     Route: 065
     Dates: start: 20110218, end: 20110226
  111. DEXTROSE. [Concomitant]
     Active Substance: DEXTROSE
     Dosage: UNK UNK, Q12H
     Route: 065
     Dates: start: 20110216, end: 20110518
  112. NEOMYCIN SULPHATE [Concomitant]
     Indication: PRODUCT USED FOR UNKNOWN INDICATION
     Dosage: UNK UNK, QD
     Route: 048
     Dates: start: 20110302
  113. BUDESONIDE. [Suspect]
     Active Substance: BUDESONIDE
     Indication: GRAFT VERSUS HOST DISEASE
     Dosage: 9 MG, QD
     Route: 048
     Dates: start: 20110202, end: 20110308
  114. METRONIDAZOLE. [Suspect]
     Active Substance: METRONIDAZOLE
     Indication: PRODUCT USED FOR UNKNOWN INDICATION
     Dosage: UNK
     Route: 065
  115. GANCICLOVIR. [Suspect]
     Active Substance: GANCICLOVIR
     Indication: PRODUCT USED FOR UNKNOWN INDICATION
     Dosage: UNK UNK, Q12H
     Route: 042
     Dates: start: 20110222, end: 20110325
  116. GANCICLOVIR. [Suspect]
     Active Substance: GANCICLOVIR
     Dosage: UNK UNK, QD
     Route: 042
     Dates: start: 20110210
  117. CICLOSPORIN [Concomitant]
     Active Substance: CYCLOSPORINE
     Dosage: UNK UNK, Q12H
     Route: 048
     Dates: start: 20110227, end: 20110228
  118. CICLOSPORIN [Concomitant]
     Active Substance: CYCLOSPORINE
     Dosage: UNK UNK, Q12H
     Route: 048
     Dates: start: 20110228, end: 20110308
  119. PYRIDOSTIGMINE [Concomitant]
     Active Substance: PYRIDOSTIGMINE
     Indication: MILLER FISHER SYNDROME
     Dosage: UNK
     Route: 065
  120. BACITRACIN. [Concomitant]
     Active Substance: BACITRACIN
     Indication: PRODUCT USED FOR UNKNOWN INDICATION
     Dosage: UNK UNK, QD
     Dates: start: 20110303
  121. DIATRIZOATE MEGLUMINE [Concomitant]
     Active Substance: DIATRIZOATE MEGLUMINE
     Indication: PRODUCT USED FOR UNKNOWN INDICATION
     Dosage: UNK UNK, QD
     Route: 048
     Dates: start: 20110221
  122. HYDRALAZINE [Concomitant]
     Active Substance: HYDRALAZINE HYDROCHLORIDE
     Indication: PRODUCT USED FOR UNKNOWN INDICATION
     Dosage: UNK
     Dates: start: 20110214, end: 20110308
  123. LORAZEPAM. [Concomitant]
     Active Substance: LORAZEPAM
     Dosage: UNK UNK, QD
     Route: 048
     Dates: start: 20110308
  124. LORAZEPAM. [Concomitant]
     Active Substance: LORAZEPAM
     Dosage: UNK UNK, QD
     Route: 048
     Dates: start: 20110214, end: 20110309
  125. MORPHINE SULPHATE [Concomitant]
     Active Substance: MORPHINE SULFATE
     Indication: PRODUCT USED FOR UNKNOWN INDICATION
     Dosage: UNK
     Dates: start: 20110303, end: 20110305
  126. ONDANSETRON [Concomitant]
     Active Substance: ONDANSETRON
     Indication: PRODUCT USED FOR UNKNOWN INDICATION
     Dosage: UNK UNK, Q12H
     Route: 042
     Dates: start: 20110216, end: 20110301
  127. ONDANSETRON [Concomitant]
     Active Substance: ONDANSETRON
     Dosage: UNK UNK, Q12H
     Route: 042
     Dates: start: 20110210, end: 20110216
  128. POTASSIUM ACETATE. [Concomitant]
     Active Substance: POTASSIUM ACETATE
     Dosage: UNK
     Route: 042
     Dates: start: 20110304
  129. POTASSIUM ACETATE. [Concomitant]
     Active Substance: POTASSIUM ACETATE
     Dosage: UNK
     Route: 042
     Dates: start: 20110306, end: 20110307
  130. POTASSIUM ACETATE. [Concomitant]
     Active Substance: POTASSIUM ACETATE
     Dosage: UNK
     Route: 042
     Dates: start: 20110217, end: 20110218
  131. POTASSIUM ACETATE. [Concomitant]
     Active Substance: POTASSIUM ACETATE
     Dosage: UNK
     Route: 042
     Dates: start: 20110218, end: 20110223
  132. SODIUM ACETATE. [Concomitant]
     Active Substance: SODIUM ACETATE
     Dosage: UNK
     Route: 042
     Dates: start: 20110211
  133. NEOMYCIN SULPHATE [Concomitant]
     Dosage: UNK UNK, Q4H
     Route: 048
     Dates: start: 20110302

REACTIONS (15)
  - Dyspnoea [Unknown]
  - Ophthalmoplegia [Unknown]
  - Constipation [Unknown]
  - Dysphagia [Unknown]
  - Paralysis [Unknown]
  - Botulism [Unknown]
  - Respiratory failure [Unknown]
  - Diarrhoea [Unknown]
  - Abdominal pain [Unknown]
  - Nausea [Unknown]
  - Product use in unapproved indication [Unknown]
  - Vision blurred [Unknown]
  - Eyelid ptosis [Unknown]
  - Dysarthria [Unknown]
  - Obstructive airways disorder [Unknown]

NARRATIVE: CASE EVENT DATE: 20110405
